FAERS Safety Report 5621161-2 (Version None)
Quarter: 2008Q1

REPORT INFORMATION
  Report Type: 
  Country: None (occurrence: None)
  Receive Date: 20080114
  Receipt Date: 20061206
  Transmission Date: 20080703
  Serious: Yes (Hospitalization)
  Sender: FDA-Public Use
  Company Number: A03200607262

PATIENT
  Age: 58 Year
  Sex: Male

DRUGS (17)
  1. PLAVIX [Suspect]
     Indication: CARDIAC OPERATION
     Dosage: 75 MG QD - ORAL
     Route: 048
     Dates: start: 20051101
  2. PLAVIX [Suspect]
     Indication: STENT PLACEMENT
     Dosage: 75 MG QD - ORAL
     Route: 048
     Dates: start: 20051101
  3. FENOFIBRATE [Concomitant]
  4. EXENATIDE SYNTHETIC [Concomitant]
  5. ALL OTHER THERAPEUTIC PRODUCTS [Concomitant]
  6. RAMIPRIL [Concomitant]
  7. METOPROLOL TARTRATE [Concomitant]
  8. ACETYLSALICYLIC ACID SRT [Concomitant]
  9. POTASSIUM CHLORIDE [Concomitant]
  10. FUROSEMIDE [Concomitant]
  11. ISOSORBIDE DINITRATE [Concomitant]
  12. CETIRIZINE HCL [Concomitant]
  13. SIMVASTATIN [Concomitant]
  14. PREGABALIN [Concomitant]
  15. GLYCERYL TRINITRATE [Concomitant]
  16. INSULIN GLARGINE [Concomitant]
  17. ZOLPIDEM TARTRATE [Concomitant]

REACTIONS (5)
  - CATARACT [None]
  - CHEST PAIN [None]
  - CORONARY ARTERY OCCLUSION [None]
  - EYE HAEMORRHAGE [None]
  - RETINOPATHY [None]
